FAERS Safety Report 10231470 (Version 1)
Quarter: 2014Q2

REPORT INFORMATION
  Report Type: Other
  Country: ES (occurrence: ES)
  Receive Date: 20140611
  Receipt Date: 20140611
  Transmission Date: 20141212
  Serious: Yes (Other)
  Sender: FDA-Public Use
  Company Number: ES-TAKEDA-2014TEU004687

PATIENT
  Age: 55 Year
  Sex: Male

DRUGS (5)
  1. OPIREN [Suspect]
     Indication: PRODUCT USED FOR UNKNOWN INDICATION
     Dosage: 15 MG, QD (1-0-0)
     Route: 065
     Dates: start: 2014
  2. PLETAL [Suspect]
     Indication: INTERMITTENT CLAUDICATION
     Dosage: 100 MG, QD (1-0-0)
     Route: 048
     Dates: start: 20140419, end: 20140427
  3. CO VALS [Suspect]
     Dosage: 1 DF, QD (1-0-0)
     Route: 065
     Dates: start: 2014
  4. ADIRO [Concomitant]
     Dosage: 0-1-0
  5. ZARATOR                            /01326102/ [Concomitant]
     Dosage: 40 MG, QD

REACTIONS (10)
  - Ventricular tachycardia [Recovered/Resolved]
  - Sense of oppression [Recovered/Resolved]
  - Muscular weakness [None]
  - Left atrial dilatation [None]
  - Cardiomyopathy [None]
  - Left ventricular hypertrophy [None]
  - Mitral valve incompetence [None]
  - Tricuspid valve incompetence [None]
  - Supraventricular tachyarrhythmia [None]
  - Supraventricular tachycardia [None]
